FAERS Safety Report 5580357-9 (Version None)
Quarter: 2007Q4

REPORT INFORMATION
  Report Type: 
  Country: None (occurrence: None)
  Receive Date: 20071228
  Receipt Date: 20071214
  Transmission Date: 20080405
  Serious: Yes (Hospitalization, Other)
  Sender: FDA-Public Use
  Company Number: 2007JP005218

PATIENT
  Age: 8 Year
  Sex: Female
  Weight: 19.4 kg

DRUGS (7)
  1. PROGRAF [Suspect]
     Indication: RENAL TRANSPLANT
     Dosage: 4 MG, BID, ORAL; 2.5 MG, BID, ORAL; 2 MG, BID, ORAL; 1 MG, BID, ORAL; 0.5 MG, BID, ORAL
     Route: 048
     Dates: start: 20021010, end: 20030401
  2. PROGRAF [Suspect]
     Indication: RENAL TRANSPLANT
     Dosage: 4 MG, BID, ORAL; 2.5 MG, BID, ORAL; 2 MG, BID, ORAL; 1 MG, BID, ORAL; 0.5 MG, BID, ORAL
     Route: 048
     Dates: start: 20030401, end: 20040201
  3. PROGRAF [Suspect]
     Indication: RENAL TRANSPLANT
     Dosage: 4 MG, BID, ORAL; 2.5 MG, BID, ORAL; 2 MG, BID, ORAL; 1 MG, BID, ORAL; 0.5 MG, BID, ORAL
     Route: 048
     Dates: start: 20040201, end: 20070701
  4. PROGRAF [Suspect]
     Indication: RENAL TRANSPLANT
     Dosage: 4 MG, BID, ORAL; 2.5 MG, BID, ORAL; 2 MG, BID, ORAL; 1 MG, BID, ORAL; 0.5 MG, BID, ORAL
     Route: 048
     Dates: start: 20070701, end: 20071101
  5. PROGRAF [Suspect]
     Indication: RENAL TRANSPLANT
     Dosage: 4 MG, BID, ORAL; 2.5 MG, BID, ORAL; 2 MG, BID, ORAL; 1 MG, BID, ORAL; 0.5 MG, BID, ORAL
     Route: 048
     Dates: start: 20071101
  6. CELLCEPT (MYCOPHENOLATE MOFETIL) FINE GRANULE [Concomitant]
  7. MEDROL (METHYLPREDNISOLONE) FINE GRANULE [Concomitant]

REACTIONS (4)
  - BRONCHITIS [None]
  - EPSTEIN-BARR VIRUS INFECTION [None]
  - LEIOMYOSARCOMA [None]
  - PNEUMONIA PNEUMOCOCCAL [None]
